FAERS Safety Report 22095517 (Version 1)
Quarter: 2023Q1

REPORT INFORMATION
  Report Type: Spontaneous
  Country: CA (occurrence: CA)
  Receive Date: 20230314
  Receipt Date: 20230314
  Transmission Date: 20230418
  Serious: Yes (Death, Other)
  Sender: FDA-Public Use
  Company Number: CA-PFIZER INC-202200549817

PATIENT
  Age: 55 Year
  Sex: Female
  Weight: 63 kg

DRUGS (4)
  1. IBRANCE [Suspect]
     Active Substance: PALBOCICLIB
     Dosage: 100 MG, CYCLIC OD X 21 DAYS; OFF FOR 7
     Route: 048
     Dates: start: 20220409
  2. IBRANCE [Suspect]
     Active Substance: PALBOCICLIB
     Dosage: 75 MG, DAILY, 21 DAYS ON, 7 DAYS OFF
     Route: 048
  3. LETROZOLE [Concomitant]
     Active Substance: LETROZOLE
     Dosage: UNK
  4. ZOLADEX [Concomitant]
     Active Substance: GOSERELIN ACETATE
     Dosage: UNK

REACTIONS (6)
  - Death [Fatal]
  - Asthenia [Unknown]
  - Back disorder [Unknown]
  - Weight decreased [Unknown]
  - Body surface area decreased [Unknown]
  - Body surface area increased [Unknown]
